FAERS Safety Report 18242069 (Version 4)
Quarter: 2020Q4

REPORT INFORMATION
  Report Type: Spontaneous
  Country: US (occurrence: US)
  Receive Date: 20200908
  Receipt Date: 20201013
  Transmission Date: 20210113
  Serious: No
  Sender: FDA-Public Use
  Company Number: US-VERTEX PHARMACEUTICALS-2020-014843

PATIENT
  Sex: Male
  Weight: 22 kg

DRUGS (2)
  1. PULMOZYME [Concomitant]
     Active Substance: DORNASE ALFA
     Dosage: 2.5 MG
  2. SYMDEKO [Suspect]
     Active Substance: IVACAFTOR\TEZACAFTOR
     Indication: CYSTIC FIBROSIS
     Dosage: 1 WHITE TAB(50MG TEZA/ 75MG IVA) AM AND 1 BLUE TAB (75 MG IVA) PM
     Route: 048
     Dates: start: 20200622, end: 20200822

REACTIONS (4)
  - Anger [Not Recovered/Not Resolved]
  - Weight gain poor [Unknown]
  - Mood swings [Not Recovered/Not Resolved]
  - Liver function test increased [Unknown]

NARRATIVE: CASE EVENT DATE: 2020
